FAERS Safety Report 4440270-7 (Version None)
Quarter: 2004Q3

REPORT INFORMATION
  Report Type: 
  Country: None (occurrence: None)
  Receive Date: 20040903
  Receipt Date: 20040526
  Transmission Date: 20050211
  Serious: No
  Sender: FDA-Public Use
  Company Number: US-GLAXOSMITHKLINE-A0512233A

PATIENT
  Age: 73 Year
  Sex: Male

DRUGS (7)
  1. REQUIP [Suspect]
     Indication: PARKINSON'S DISEASE
     Dosage: .5MG THREE TIMES PER DAY
     Route: 048
     Dates: start: 20040420
  2. MAVIK [Concomitant]
  3. NEURONTIN [Concomitant]
  4. EFFEXOR [Concomitant]
  5. ASPIRIN [Concomitant]
  6. ULTRAM [Concomitant]
  7. GLUCOPHAGE [Concomitant]

REACTIONS (6)
  - HEART RATE IRREGULAR [None]
  - HYPOTENSION [None]
  - MEDICATION ERROR [None]
  - NAUSEA [None]
  - OVERDOSE [None]
  - TREMOR [None]
